FAERS Safety Report 13984252 (Version 1)
Quarter: 2017Q3

REPORT INFORMATION
  Report Type: Spontaneous
  Country: US (occurrence: US)
  Receive Date: 20170918
  Receipt Date: 20170918
  Transmission Date: 20171128
  Serious: Yes (Other)
  Sender: FDA-Public Use
  Company Number: US-PFIZER INC-2016204596

PATIENT
  Age: 63 Year
  Sex: Male
  Weight: 50 kg

DRUGS (8)
  1. RAPAMUNE [Suspect]
     Active Substance: SIROLIMUS
     Dosage: 5 TABLETS TWICE DAILY
  2. ATENOLOL. [Concomitant]
     Active Substance: ATENOLOL
     Indication: CARDIAC DISORDER
     Dosage: 50 MG, 2X/DAY
     Dates: start: 2003
  3. RAPAMUNE [Suspect]
     Active Substance: SIROLIMUS
     Indication: RENAL TRANSPLANT
     Dosage: 1 MG 5 TABLETS PER DAY (FIVE 1MG TABLETS ONCE A DAY)
     Route: 048
     Dates: start: 2003
  4. GLIPIZIDE. [Concomitant]
     Active Substance: GLIPIZIDE
     Indication: DIABETES MELLITUS
     Dosage: 5 MG, 1X/DAY
     Dates: start: 2003
  5. TACROLIMUS. [Concomitant]
     Active Substance: TACROLIMUS
     Indication: IMMUNOSUPPRESSANT DRUG THERAPY
     Dosage: 7 MG, DAILY, (FOUR 1MG TABLETS IN MORNING AND THREE 1MG TABLETS AT NIGHT)
     Dates: start: 2003
  6. LASIX [Concomitant]
     Active Substance: FUROSEMIDE
     Indication: FLUID RETENTION
     Dosage: DAILY, (40MG ONE AND HALF TABLET A DAY)
     Dates: start: 2003
  7. PREDNISONE. [Concomitant]
     Active Substance: PREDNISONE
     Indication: ANTIINFLAMMATORY THERAPY
     Dosage: 5 MG, 1X/DAY
     Dates: start: 2003
  8. NIFEDIPINE. [Concomitant]
     Active Substance: NIFEDIPINE
     Indication: CARDIAC DISORDER
     Dosage: 90 MG, 1X/DAY
     Dates: start: 2010

REACTIONS (2)
  - Renal impairment [Not Recovered/Not Resolved]
  - Drug prescribing error [Unknown]

NARRATIVE: CASE EVENT DATE: 201708
